FAERS Safety Report 8533595 (Version 2)
Quarter: 2014Q3

REPORT INFORMATION
  Report Type: Other
  Country: CA (occurrence: CA)
  Receive Date: 20120427
  Receipt Date: 20140812
  Transmission Date: 20150326
  Serious: Yes (Other)
  Sender: FDA-Public Use
  Company Number: CA-BRISTOL-MYERS SQUIBB COMPANY-16536534

PATIENT
  Age: 41 Year
  Sex: Male

DRUGS (10)
  1. CALCIUM [Concomitant]
     Active Substance: CALCIUM
     Dates: start: 201004
  2. MAGNESIUM [Concomitant]
     Active Substance: MAGNESIUM
     Dates: start: 201004
  3. RUTIN [Concomitant]
     Active Substance: RUTIN
     Dates: start: 201004
  4. MULTIVITAMIN [Concomitant]
     Active Substance: VITAMINS
     Dates: start: 201004
  5. STOCRIN [Suspect]
     Active Substance: EFAVIRENZ
     Indication: HIV INFECTION
     Dosage: CAPS
     Route: 048
     Dates: start: 1999
  6. VITAMIN D [Concomitant]
     Active Substance: CHOLECALCIFEROL
     Dates: start: 201004
  7. FLAXSEED [Concomitant]
     Active Substance: FLAX SEED
     Dates: start: 201004
  8. GINKGO BILOBA [Interacting]
     Active Substance: GINKGO
     Dates: start: 201004
  9. OMEGA-3 ACIDS [Concomitant]
     Active Substance: OMEGA-3 FATTY ACIDS
     Dates: start: 201004
  10. HORSE-CHESTNUT [Concomitant]
     Indication: HAEMORRHOIDS
     Dates: start: 201004

REACTIONS (2)
  - Drug interaction [Unknown]
  - Viral load increased [Unknown]

NARRATIVE: CASE EVENT DATE: 201006
